FAERS Safety Report 11176128 (Version 1)
Quarter: 2015Q2

REPORT INFORMATION
  Report Type: Report from Study
  Country: GB (occurrence: GB)
  Receive Date: 20150609
  Receipt Date: 20150609
  Transmission Date: 20150821
  Serious: Yes (Other)
  Sender: FDA-Public Use
  Company Number: PHHY2015GB066432

PATIENT
  Sex: Female

DRUGS (1)
  1. SOMATROPIN [Suspect]
     Active Substance: SOMATROPIN
     Indication: PRODUCT USED FOR UNKNOWN INDICATION
     Dosage: 0.2 MG, QD
     Route: 058
     Dates: start: 20150508

REACTIONS (7)
  - Joint swelling [Unknown]
  - Headache [Unknown]
  - Chest pain [Unknown]
  - Dizziness [Unknown]
  - Pollakiuria [Unknown]
  - Chest discomfort [Unknown]
  - Weight increased [Unknown]
